FAERS Safety Report 21389403 (Version 1)
Quarter: 2022Q3

REPORT INFORMATION
  Report Type: Spontaneous
  Country: US (occurrence: US)
  Receive Date: 20220929
  Receipt Date: 20220929
  Transmission Date: 20221027
  Serious: No
  Sender: FDA-Public Use
  Company Number: US-RECORDATI RARE DISEASES INC.-2022001111

PATIENT
  Age: 36 Year
  Sex: Female
  Weight: 68.027 kg

DRUGS (1)
  1. PANHEMATIN [Suspect]
     Active Substance: HEMIN
     Indication: Prophylaxis
     Dosage: FOUR DOSES, FOUR WEEKS APART
     Route: 065
     Dates: start: 202003, end: 202006

REACTIONS (2)
  - Off label use [Unknown]
  - No adverse event [Unknown]
